FAERS Safety Report 24655595 (Version 1)
Quarter: 2024Q4

REPORT INFORMATION
  Report Type: Report from Study
  Country: US (occurrence: US)
  Receive Date: 20241123
  Receipt Date: 20241123
  Transmission Date: 20250114
  Serious: Yes (Other)
  Sender: ABBVIE
  Company Number: US-ABBVIE-5922493

PATIENT
  Age: 74 Year
  Sex: Female
  Weight: 83 kg

DRUGS (19)
  1. DUOPA [Suspect]
     Active Substance: CARBIDOPA\LEVODOPA
     Indication: Product used for unknown indication
     Route: 050
     Dates: start: 20210722
  2. DUOPA [Suspect]
     Active Substance: CARBIDOPA\LEVODOPA
     Dosage: 6.0 ML MORNING DOSE AFTER SHOWER, 1 ML EXTRA DOSE 3-4 TIMES A DAY, CD 2.4 ML
     Route: 050
  3. AMOXICILLIN [Concomitant]
     Active Substance: AMOXICILLIN
     Indication: Product used for unknown indication
  4. EPA [Concomitant]
     Indication: Product used for unknown indication
  5. DIETARY SUPPLEMENT [Concomitant]
     Active Substance: DIETARY SUPPLEMENT
     Indication: Product used for unknown indication
  6. Meso-Zeaxanthin [Concomitant]
     Indication: Product used for unknown indication
  7. Zeaxanth [Concomitant]
     Indication: Product used for unknown indication
  8. EPA/DHA [Concomitant]
     Indication: Product used for unknown indication
  9. Nyplazid [Concomitant]
     Indication: Product used for unknown indication
     Route: 048
  10. FLUTICASONE PROPIONATE [Suspect]
     Active Substance: FLUTICASONE PROPIONATE
     Indication: Hypersensitivity
     Route: 045
  11. OLOPATADINE HYDROCHLORIDE [Concomitant]
     Active Substance: OLOPATADINE HYDROCHLORIDE
     Indication: Eye allergy
     Route: 047
  12. CARBIDOPA LEVODOPA [Suspect]
     Active Substance: CARBIDOPA\LEVODOPA
     Indication: Parkinson^s disease
     Dosage: 25/100 MG
     Route: 048
  13. RYTARY [Concomitant]
     Active Substance: CARBIDOPA\LEVODOPA
     Indication: Product used for unknown indication
     Dosage: 48.75/95 MG , WHEN OFF THE PUMP TAKE ONE OF EACH EVERY 4 HOURS OR AS NEEDED
  14. VITAMIN D3 [Concomitant]
     Active Substance: CHOLECALCIFEROL
     Indication: Product used for unknown indication
     Dosage: (5000 IU)
  15. I-Lysine HCL [Concomitant]
     Indication: Product used for unknown indication
  16. VITAMIN B6 [Concomitant]
     Active Substance: PYRIDOXINE HYDROCHLORIDE
     Indication: Product used for unknown indication
  17. VITAMIN B12 [Concomitant]
     Active Substance: CYANOCOBALAMIN
     Indication: Product used for unknown indication
  18. Calcium w/magnesium + zinc [Concomitant]
     Indication: Product used for unknown indication
     Dosage: 333 MG W/133 MG + 5 MG
  19. LUTEIN [Concomitant]
     Active Substance: LUTEIN
     Indication: Product used for unknown indication

REACTIONS (18)
  - Deep brain stimulation [Unknown]
  - Stoma complication [Unknown]
  - Lumbosacral radiculopathy [Unknown]
  - Blood pressure increased [Unknown]
  - Hypotension [Recovered/Resolved]
  - Dizziness [Unknown]
  - Skin infection [Unknown]
  - Brain fog [Recovering/Resolving]
  - Tremor [Unknown]
  - Dyspnoea [Unknown]
  - Facial discomfort [Unknown]
  - Dry age-related macular degeneration [Unknown]
  - Dermatitis contact [Unknown]
  - Medical device discomfort [Unknown]
  - Erythema [Unknown]
  - Panic reaction [Unknown]
  - Epistaxis [Unknown]
  - Rash [Unknown]
